FAERS Safety Report 16462121 (Version 1)
Quarter: 2019Q2

REPORT INFORMATION
  Report Type: Report from Study
  Country: None (occurrence: US)
  Receive Date: 20190621
  Receipt Date: 20190621
  Transmission Date: 20190711
  Serious: Yes (Death, Hospitalization, Other)
  Sender: FDA-Public Use
  Company Number: US-ABBVIE-19K-163-2785853-00

PATIENT
  Age: 73 Year
  Sex: Male

DRUGS (1)
  1. HUMIRA [Suspect]
     Active Substance: ADALIMUMAB
     Indication: CROHN^S DISEASE
     Route: 058
     Dates: start: 201607, end: 201905

REACTIONS (9)
  - Asthenia [Fatal]
  - Dyspnoea [Fatal]
  - Pulmonary oedema [Fatal]
  - Infection [Fatal]
  - Myocardial oedema [Fatal]
  - Cyst [Fatal]
  - Chronic kidney disease [Not Recovered/Not Resolved]
  - Gait inability [Fatal]
  - Somnolence [Fatal]

NARRATIVE: CASE EVENT DATE: 2016
